FAERS Safety Report 11053637 (Version 1)
Quarter: 2015Q2

REPORT INFORMATION
  Report Type: Spontaneous
  Country: US (occurrence: US)
  Receive Date: 20150421
  Receipt Date: 20150421
  Transmission Date: 20150821
  Serious: Yes (Hospitalization, Other)
  Sender: FDA-Public Use
  Company Number: US-BAUSCH-BL-2015-011154

PATIENT
  Age: 17 Year
  Sex: Female

DRUGS (3)
  1. PREDNISONE. [Suspect]
     Active Substance: PREDNISONE
     Dosage: MAINTANANCE CANCER CHEMOTHERAPY FOR 5 DAYS EACH MONTH FOR 1 AND 1/2 YEARS AFTER THE MANIC EPISODE.
     Route: 065
  2. DEXAMETHASONE. [Suspect]
     Active Substance: DEXAMETHASONE
     Indication: ACUTE LYMPHOCYTIC LEUKAEMIA
  3. PREDNISONE. [Suspect]
     Active Substance: PREDNISONE
     Indication: ACUTE LYMPHOCYTIC LEUKAEMIA
     Route: 065

REACTIONS (14)
  - Panic attack [Recovering/Resolving]
  - Neutropenia [Recovering/Resolving]
  - Psychomotor hyperactivity [None]
  - Nightmare [None]
  - Pyrexia [None]
  - Insomnia [None]
  - Flight of ideas [None]
  - Mania [Recovering/Resolving]
  - Euphoric mood [None]
  - Fear [None]
  - Tachyphrenia [None]
  - Delusion [None]
  - Pressure of speech [None]
  - Affect lability [None]
